FAERS Safety Report 5469315-2 (Version None)
Quarter: 2007Q3

REPORT INFORMATION
  Report Type: 
  Country: None (occurrence: None)
  Receive Date: 20070927
  Receipt Date: 20070814
  Transmission Date: 20080115
  Serious: Yes (Hospitalization)
  Sender: FDA-Public Use
  Company Number: DE-BRISTOL-MYERS SQUIBB COMPANY-13919576

PATIENT
  Age: 42 Year
  Sex: Female

DRUGS (3)
  1. ENDOXAN [Suspect]
     Indication: CHEMOTHERAPY
     Dates: start: 20070101, end: 20070101
  2. DOXORUBICIN HCL [Suspect]
     Indication: CHEMOTHERAPY
     Dates: start: 20070101, end: 20070101
  3. TAXOTERE [Suspect]
     Indication: CHEMOTHERAPY
     Dates: start: 20070101, end: 20070101

REACTIONS (1)
  - FEBRILE NEUTROPENIA [None]
